FAERS Safety Report 10173649 (Version 3)
Quarter: 2014Q2

REPORT INFORMATION
  Report Type: Spontaneous
  Country: IT (occurrence: IT)
  Receive Date: 20140515
  Receipt Date: 20140529
  Transmission Date: 20141212
  Serious: Yes (Other)
  Sender: FDA-Public Use
  Company Number: IT-TEVA-480541ISR

PATIENT
  Age: 17 Year
  Sex: Female

DRUGS (2)
  1. OLANZAPINA TEVA [Suspect]
     Indication: PSYCHOTIC DISORDER
     Dosage: 15 MILLIGRAM DAILY;
     Route: 048
     Dates: start: 20140418, end: 20140422
  2. OLANZAPINA DOC [Suspect]
     Indication: PSYCHOTIC DISORDER
     Dosage: 15 MILLIGRAM DAILY;
     Dates: start: 20140423, end: 20140427

REACTIONS (6)
  - Aggression [Recovered/Resolved]
  - Agitation [Recovered/Resolved]
  - Dysphoria [Recovered/Resolved]
  - Insomnia [Recovered/Resolved]
  - Therapeutic response changed [Recovered/Resolved]
  - Product substitution issue [Recovered/Resolved]
